FAERS Safety Report 9344320 (Version 1)
Quarter: 2013Q2

REPORT INFORMATION
  Report Type: Not Available
  Country: GB (occurrence: GB)
  Receive Date: 20130612
  Receipt Date: 20130612
  Transmission Date: 20140414
  Serious: Yes (Other)
  Sender: FDA-Public Use
  Company Number: GB-ASTELLAS-2013EU004796

PATIENT
  Age: 67 Year
  Sex: Female
  Weight: 80 kg

DRUGS (10)
  1. YM178 [Suspect]
     Indication: POLLAKIURIA
     Dosage: 25 MG, UID/QD
     Route: 065
     Dates: start: 20130503, end: 20130507
  2. ATORVASTATIN [Concomitant]
     Indication: HYPERCHOLESTEROLAEMIA
     Dosage: 40 MG, UID/QD
     Route: 065
     Dates: start: 2011
  3. CITALOPRAM                         /00582602/ [Concomitant]
     Indication: ANXIETY
     Dosage: 20 MG, UID/QD
     Route: 065
     Dates: start: 2011
  4. CO-AMOXICLAV                       /00756801/ [Concomitant]
     Indication: URINARY TRACT INFECTION
     Dosage: 625 MG, TID
     Route: 065
     Dates: start: 20130228, end: 20130307
  5. LANSOPRAZOLE [Concomitant]
     Indication: HYPERCHLORHYDRIA
     Dosage: 30 MG, UID/QD
     Route: 065
     Dates: start: 201208
  6. LEVOTHYROXINE [Concomitant]
     Indication: HYPOTHYROIDISM
     Dosage: 125 UG, UID/QD
     Route: 065
     Dates: start: 201207
  7. NITROFURANTOIN [Concomitant]
     Indication: URINARY TRACT INFECTION
     Dosage: 50 MG, QID
     Route: 065
     Dates: start: 20130408, end: 20130410
  8. NITROFURANTOIN [Concomitant]
     Dosage: 100 MG, UID/QD
     Route: 065
  9. TRIMETHOPRIM [Concomitant]
     Indication: URINARY TRACT INFECTION
     Dosage: 200 MG, BID
     Dates: start: 20130305, end: 20130319
  10. TROSPIUM CHLORIDE [Concomitant]
     Indication: POLLAKIURIA
     Dosage: 60 MG, UID/QD
     Route: 065
     Dates: start: 20121213, end: 20130502

REACTIONS (6)
  - Arthralgia [Recovered/Resolved]
  - Urinary incontinence [Recovered/Resolved]
  - Feeling abnormal [Recovered/Resolved]
  - Pyrexia [Recovered/Resolved]
  - Extrasystoles [Recovered/Resolved]
  - Chills [Recovered/Resolved]
